FAERS Safety Report 22015756 (Version 1)
Quarter: 2023Q1

REPORT INFORMATION
  Report Type: Spontaneous
  Country: US (occurrence: None)
  Receive Date: 20230216
  Receipt Date: 20230216
  Transmission Date: 20230417
  Serious: Yes (Hospitalization)
  Sender: FDA-Public Use
  Company Number: None

PATIENT
  Sex: Male

DRUGS (1)
  1. TADALAFIL [Suspect]
     Active Substance: TADALAFIL
     Indication: Pulmonary arterial hypertension
     Dosage: 40MG EVERY DAY VIA G-TUBE
     Route: 050
     Dates: start: 20221115

REACTIONS (5)
  - Hypoacusis [None]
  - Visual impairment [None]
  - Ocular hyperaemia [None]
  - Neuropathy peripheral [None]
  - Protein total decreased [None]
